FAERS Safety Report 4332125-3 (Version None)
Quarter: 2004Q1

REPORT INFORMATION
  Report Type: 
  Country: None (occurrence: None)
  Receive Date: 20040331
  Receipt Date: 20040319
  Transmission Date: 20041129
  Serious: Yes (Hospitalization)
  Sender: FDA-Public Use
  Company Number: IT-JNJFOC-20040304866

PATIENT
  Age: 89 Year
  Sex: Male

DRUGS (5)
  1. RISPERDAL [Suspect]
     Indication: VASCULAR DEMENTIA
     Dosage: 1 MG, 1 IN 1 DAY, ORAL
     Route: 048
     Dates: start: 20040101, end: 20040302
  2. ALLOPURINOL [Concomitant]
  3. LANSOPRAZOLE [Concomitant]
  4. CALCIUM (CALCIUM) [Concomitant]
  5. CLOTIAPINE (CLOTIAPINE) [Concomitant]

REACTIONS (1)
  - DEPRESSED LEVEL OF CONSCIOUSNESS [None]
